FAERS Safety Report 8830648 (Version 1)
Quarter: 2012Q4

REPORT INFORMATION
  Report Type: 
  Country: GB (occurrence: GB)
  Receive Date: 20121008
  Receipt Date: 20121008
  Transmission Date: 20130627
  Serious: Yes (Other)
  Sender: FDA-Public Use
  Company Number: GB-009507513-1210GBR002008

PATIENT
  Age: 29 Year
  Sex: Female
  Weight: 85 kg

DRUGS (1)
  1. IMPLANON [Suspect]
     Dosage: 68 mg, UNK
     Route: 059

REACTIONS (4)
  - Device breakage [Unknown]
  - Complication of device removal [Unknown]
  - Surgery [Unknown]
  - No adverse event [Unknown]
